FAERS Safety Report 5782587-X (Version None)
Quarter: 2008Q2

REPORT INFORMATION
  Report Type: 
  Country: None (occurrence: None)
  Receive Date: 20080624
  Receipt Date: 20080616
  Transmission Date: 20081010
  Serious: Yes (Hospitalization)
  Sender: FDA-Public Use
  Company Number: DE-PFIZER INC-2008050063

PATIENT
  Age: 75 Year
  Sex: Male

DRUGS (5)
  1. CHANTIX [Suspect]
     Indication: SMOKING CESSATION THERAPY
     Route: 048
     Dates: start: 20080501, end: 20080524
  2. BELOC ZOK [Concomitant]
     Route: 048
  3. ASPIRIN [Concomitant]
     Route: 048
  4. SERUMLIPIDREDUCING AGENTS [Concomitant]
  5. RAMIPRIL [Concomitant]

REACTIONS (3)
  - CONVULSION [None]
  - FALL [None]
  - WRIST FRACTURE [None]
